FAERS Safety Report 8520261-7 (Version None)
Quarter: 2012Q3

REPORT INFORMATION
  Report Type: 
  Country: None (occurrence: None)
  Receive Date: 20120713
  Receipt Date: 20120713
  Transmission Date: 20120928
  Serious: Yes (Hospitalization)
  Sender: FDA-Public Use
  Company Number: None

PATIENT
  Age: 65 Year
  Sex: Male
  Weight: 141.1 kg

DRUGS (1)
  1. DIGOXIN [Suspect]
     Indication: CARDIAC FAILURE CONGESTIVE
     Dosage: MG PO
     Route: 048
     Dates: start: 20120319, end: 20120701

REACTIONS (2)
  - TOXICITY TO VARIOUS AGENTS [None]
  - BRADYCARDIA [None]
